FAERS Safety Report 8728016 (Version 2)
Quarter: 2012Q4

REPORT INFORMATION
  Report Type: 
  Country: HU (occurrence: HU)
  Receive Date: 20120816
  Receipt Date: 20120831
  Transmission Date: 20130627
  Serious: Yes (Hospitalization)
  Sender: FDA-Public Use
  Company Number: HU-BAXTER-2012BAX014057

PATIENT
  Age: 51 Year
  Sex: Female

DRUGS (2)
  1. DIANEAL PD4 GLUCOSE 2,27 % W/V [Suspect]
     Indication: END STAGE RENAL DISEASE (ESRD)
     Route: 033
  2. EXTRANEAL [Suspect]
     Indication: END STAGE RENAL DISEASE (ESRD)
     Route: 033
     Dates: start: 20120717

REACTIONS (3)
  - Peritonitis [Recovering/Resolving]
  - Pyrexia [Unknown]
  - Product container issue [Unknown]
